FAERS Safety Report 5908331-0 (Version None)
Quarter: 2008Q4

REPORT INFORMATION
  Report Type: 
  Country: None (occurrence: None)
  Receive Date: 20081006
  Receipt Date: 20080925
  Transmission Date: 20090506
  Serious: Yes (Death)
  Sender: FDA-Public Use
  Company Number: JP-ALLERGAN-0811318US

PATIENT
  Sex: Male

DRUGS (4)
  1. BOTULINUM TOXIN TYPE A [Suspect]
     Indication: FACIAL SPASM
     Dosage: 12.5 UNITS, SINGLE
     Route: 030
     Dates: start: 20031006, end: 20031006
  2. BOTULINUM TOXIN TYPE A [Suspect]
     Dosage: 12.5 UNITS, SINGLE
     Route: 030
     Dates: start: 20040714, end: 20040714
  3. BOTULINUM TOXIN TYPE A [Suspect]
     Dosage: 12.5 UNITS, SINGLE
     Route: 030
     Dates: start: 20050329, end: 20050329
  4. BOTULINUM TOXIN TYPE A [Suspect]
     Dosage: 12.5 UNITS, SINGLE
     Route: 030
     Dates: start: 20071026, end: 20071026

REACTIONS (1)
  - DEATH [None]
